FAERS Safety Report 16903506 (Version 1)
Quarter: 2019Q4

REPORT INFORMATION
  Report Type: Spontaneous
  Country: US (occurrence: US)
  Receive Date: 20191010
  Receipt Date: 20191010
  Transmission Date: 20200122
  Serious: Yes (Other)
  Sender: FDA-Public Use
  Company Number: US-ABBVIE-19P-163-2950737-00

PATIENT
  Age: 57 Year
  Sex: Male

DRUGS (3)
  1. VANCOMYCIN [Concomitant]
     Active Substance: VANCOMYCIN
     Indication: ACUTE RESPIRATORY DISTRESS SYNDROME
  2. PIPERACILLIN AND TAZOBACTAM [Concomitant]
     Active Substance: PIPERACILLIN SODIUM\TAZOBACTAM SODIUM
     Indication: ACUTE RESPIRATORY DISTRESS SYNDROME
  3. CISATRACURIUM. [Suspect]
     Active Substance: CISATRACURIUM
     Indication: NEUROMUSCULAR BLOCKING THERAPY
     Route: 065

REACTIONS (1)
  - Hyperthermia malignant [Recovered/Resolved]
